FAERS Safety Report 10262811 (Version 2)
Quarter: 2014Q2

REPORT INFORMATION
  Report Type: Report from Study
  Country: US (occurrence: US)
  Receive Date: 20140626
  Receipt Date: 20140626
  Transmission Date: 20141212
  Serious: Yes (Other)
  Sender: FDA-Public Use
  Company Number: US-MYLANLABS-2013S1017465

PATIENT
  Age: 19 Year
  Sex: Male
  Weight: 56.7 kg

DRUGS (17)
  1. CLOZAPINE TABLETS [Suspect]
     Indication: OBSESSIVE-COMPULSIVE DISORDER
     Dates: start: 2012, end: 20140212
  2. CLOZAPINE TABLETS [Suspect]
     Indication: IMPULSE-CONTROL DISORDER
     Dates: start: 2012, end: 20140212
  3. CLOZAPINE TABLETS [Suspect]
     Indication: PSYCHOMOTOR HYPERACTIVITY
     Dates: start: 2012, end: 20140212
  4. CLOZAPINE TABLETS [Suspect]
     Indication: ATTENTION DEFICIT/HYPERACTIVITY DISORDER
     Dates: start: 2012, end: 20140212
  5. CLOZAPINE TABLETS [Suspect]
     Indication: OFF LABEL USE
     Dates: start: 2012, end: 20140212
  6. CLOZAPINE TABLETS [Suspect]
     Indication: OBSESSIVE-COMPULSIVE DISORDER
     Route: 048
     Dates: start: 2012, end: 20140212
  7. CLOZAPINE TABLETS [Suspect]
     Indication: IMPULSE-CONTROL DISORDER
     Route: 048
     Dates: start: 2012, end: 20140212
  8. CLOZAPINE TABLETS [Suspect]
     Indication: PSYCHOMOTOR HYPERACTIVITY
     Route: 048
     Dates: start: 2012, end: 20140212
  9. CLOZAPINE TABLETS [Suspect]
     Indication: ATTENTION DEFICIT/HYPERACTIVITY DISORDER
     Route: 048
     Dates: start: 2012, end: 20140212
  10. CLOZAPINE TABLETS [Suspect]
     Indication: OFF LABEL USE
     Route: 048
     Dates: start: 2012, end: 20140212
  11. CLOPIDOGREL [Concomitant]
  12. TENEX [Concomitant]
     Route: 048
     Dates: start: 20120315
  13. ZINC SULFATE [Concomitant]
  14. CONCERTA [Concomitant]
     Dosage: ONE TAB IN AM AND ONE TAB AT 2PM
     Route: 048
     Dates: start: 20111205
  15. ALPRAZOLAM [Concomitant]
     Indication: ANXIETY
     Route: 048
     Dates: start: 20120730
  16. VISTARIL [Concomitant]
     Indication: INSOMNIA
     Dosage: TAKE ONE AT BEDTIME FOR INSOMNIA MAY REPEAT IN ONE HOUR
     Route: 048
     Dates: start: 20120703
  17. ANAFRANIL [Concomitant]
     Route: 048
     Dates: start: 20130730

REACTIONS (2)
  - Granulocytopenia [Not Recovered/Not Resolved]
  - White blood cell count decreased [Recovered/Resolved]
